FAERS Safety Report 7659391-0 (Version None)
Quarter: 2011Q3

REPORT INFORMATION
  Report Type: 
  Country: None (occurrence: None)
  Receive Date: 20110805
  Receipt Date: 20110727
  Transmission Date: 20111222
  Serious: Yes (Disabling, Other)
  Sender: FDA-Public Use
  Company Number: AU-GENZYME-THYM-1002574

PATIENT
  Sex: Male
  Weight: 74 kg

DRUGS (13)
  1. VALGANCICLOVIR [Concomitant]
     Indication: ANTIVIRAL PROPHYLAXIS
     Dosage: 450 MG, BID
     Dates: start: 20110621
  2. FENTANYL [Concomitant]
     Indication: ANALGESIC THERAPY
     Dosage: 2.5 MCG/ML, UNK
     Dates: start: 20110618, end: 20110620
  3. PREDNISOLONE [Concomitant]
     Indication: IMMUNOSUPPRESSION
     Dosage: 30 MG, QD
     Dates: start: 20110618
  4. RESPRIM [Concomitant]
     Indication: PROPHYLAXIS
     Dosage: UNK
     Dates: start: 20110618
  5. FLUCONAL [Concomitant]
     Indication: ANTIFUNGAL PROPHYLAXIS
     Dosage: 100 MG, QD
     Dates: start: 20110618, end: 20110623
  6. THYMOGLOBULIN [Suspect]
     Indication: PROPHYLAXIS AGAINST TRANSPLANT REJECTION
     Dosage: 150 MG, QD
     Route: 042
     Dates: start: 20110620, end: 20110620
  7. METRONIDAZOLE [Concomitant]
     Indication: INFECTION PROPHYLAXIS
     Dosage: 500 MG, QID
     Dates: start: 20110618, end: 20110623
  8. PANTOPRAZOLE SODIUM [Concomitant]
     Indication: PROPHYLAXIS AGAINST GASTROINTESTINAL ULCER
     Dosage: 40 MG, QD
     Dates: start: 20110618
  9. BASILIXIMAB [Concomitant]
     Indication: PROPHYLAXIS AGAINST TRANSPLANT REJECTION
     Dosage: 20 MG, UNK
     Dates: start: 20110618
  10. HEPARIN [Concomitant]
     Indication: ANTICOAGULANT THERAPY
     Dosage: UNK
     Dates: start: 20110618, end: 20110710
  11. BUPIVACAINE HCL [Concomitant]
     Indication: ANALGESIC THERAPY
     Dosage: 0.125 %, UNK
     Dates: start: 20110618, end: 20110620
  12. TACROLIMUS [Concomitant]
     Indication: IMMUNOSUPPRESSION
     Dosage: 5.5 MG, BID
     Dates: start: 20110618
  13. MYCOPHENOLATE MOFETIL [Concomitant]
     Indication: IMMUNOSUPPRESSION
     Dosage: 1 G, BID
     Dates: start: 20110618

REACTIONS (5)
  - ARTERIAL THROMBOSIS [None]
  - DIPLEGIA [None]
  - PARAPLEGIA [None]
  - CYTOKINE STORM [None]
  - INFUSION RELATED REACTION [None]
